FAERS Safety Report 12491381 (Version 2)
Quarter: 2016Q3

REPORT INFORMATION
  Report Type: Spontaneous
  Country: FI (occurrence: FI)
  Receive Date: 20160623
  Receipt Date: 20160802
  Transmission Date: 20161109
  Serious: Yes (Disabling, Other)
  Sender: FDA-Public Use
  Company Number: FI-ABBVIE-16K-055-1655444-00

PATIENT
  Age: 42 Year
  Sex: Male

DRUGS (11)
  1. MELOXICAM. [Concomitant]
     Active Substance: MELOXICAM
     Indication: PRODUCT USED FOR UNKNOWN INDICATION
  2. PENTASA [Concomitant]
     Active Substance: MESALAMINE
     Indication: CROHN^S DISEASE
     Dosage: BOTH 4X500MG AND 2500MG HAD BEEN RECORDED AS DAILY DOSE
     Route: 048
     Dates: end: 20160308
  3. LIDOCAIN [Concomitant]
     Active Substance: LIDOCAINE
     Indication: ANALGESIC THERAPY
     Dates: start: 20151127
  4. SERTRALINE [Concomitant]
     Active Substance: SERTRALINE HYDROCHLORIDE
     Indication: PRODUCT USED FOR UNKNOWN INDICATION
     Route: 048
     Dates: start: 20151117
  5. HUMIRA [Suspect]
     Active Substance: ADALIMUMAB
     Indication: CROHN^S DISEASE
     Route: 058
     Dates: start: 20150704, end: 20150704
  6. PANACOD [Concomitant]
     Active Substance: ACETAMINOPHEN\CODEINE PHOSPHATE
     Indication: PRODUCT USED FOR UNKNOWN INDICATION
  7. HUMIRA [Suspect]
     Active Substance: ADALIMUMAB
     Route: 058
     Dates: start: 2015, end: 20160308
  8. AZAMUN [Concomitant]
     Active Substance: AZATHIOPRINE
     Indication: CROHN^S DISEASE
     Route: 048
     Dates: start: 20150502
  9. HUMIRA [Suspect]
     Active Substance: ADALIMUMAB
     Route: 058
     Dates: start: 201507, end: 201507
  10. DOXIMYCIN [Concomitant]
     Active Substance: DOXYCYCLINE
     Indication: PRODUCT USED FOR UNKNOWN INDICATION
     Dates: start: 201512
  11. STILNOCT [Concomitant]
     Active Substance: ZOLPIDEM TARTRATE
     Indication: PRODUCT USED FOR UNKNOWN INDICATION

REACTIONS (20)
  - Cervical radiculopathy [Recovering/Resolving]
  - Hypoaesthesia [Not Recovered/Not Resolved]
  - Immunosuppression [Unknown]
  - Hyporeflexia [Unknown]
  - Nerve root injury thoracic [Unknown]
  - Winged scapula [Not Recovered/Not Resolved]
  - Electromyogram abnormal [Unknown]
  - Hypoaesthesia [Not Recovered/Not Resolved]
  - Human herpes virus 6 serology positive [Unknown]
  - Arthralgia [Recovered/Resolved with Sequelae]
  - Mobility decreased [Not Recovered/Not Resolved]
  - Joint range of motion decreased [Not Recovered/Not Resolved]
  - Antibody test abnormal [Unknown]
  - Cardiac fibrillation [Unknown]
  - Paraesthesia [Recovered/Resolved]
  - Hypokinesia [Not Recovered/Not Resolved]
  - Musculoskeletal stiffness [Not Recovered/Not Resolved]
  - Muscle atrophy [Not Recovered/Not Resolved]
  - Neuralgic amyotrophy [Unknown]
  - Cervical spinal stenosis [Unknown]

NARRATIVE: CASE EVENT DATE: 201508
